FAERS Safety Report 25331007 (Version 2)
Quarter: 2025Q2

REPORT INFORMATION
  Report Type: Spontaneous
  Country: US (occurrence: US)
  Receive Date: 20250519
  Receipt Date: 20250528
  Transmission Date: 20250716
  Serious: Yes (Hospitalization, Other)
  Sender: ALKEM
  Company Number: None

PATIENT
  Age: 73 Year
  Sex: Male

DRUGS (2)
  1. MYCOPHENOLATE MOFETIL [Suspect]
     Active Substance: MYCOPHENOLATE MOFETIL
     Indication: Immunosuppressant drug therapy
     Route: 065
  2. METHOTREXATE [Suspect]
     Active Substance: METHOTREXATE
     Indication: Immunosuppressant drug therapy
     Route: 065

REACTIONS (6)
  - Barrett^s oesophagus [Unknown]
  - Gastric polyps [Unknown]
  - Cytomegalovirus gastroenteritis [Unknown]
  - Cytomegalovirus colitis [Unknown]
  - Gastritis erosive [Unknown]
  - COVID-19 [Unknown]
